FAERS Safety Report 4912978-8 (Version None)
Quarter: 2006Q1

REPORT INFORMATION
  Report Type: 
  Country: None (occurrence: None)
  Receive Date: 20060210
  Receipt Date: 20060127
  Transmission Date: 20060701
  Serious: Yes (Death)
  Sender: FDA-Public Use
  Company Number: 2005S1008496

PATIENT
  Age: 65 Year
  Sex: Male
  Weight: 74.8435 kg

DRUGS (12)
  1. CLOZAPINE [Suspect]
     Indication: SCHIZOPHRENIA
     Dosage: SEE IMAGE
     Route: 048
  2. MEGESTROL ACETATE [Concomitant]
  3. DIGOXIN [Concomitant]
  4. LANSOPRAZOLE [Concomitant]
  5. DOCUSATE CALCIUM [Concomitant]
  6. LITHIUM CARBONATE [Concomitant]
  7. TRIAMCINOLONE ACETONIDE [Concomitant]
  8. IPRATROPIUM BROMIDE/SALBUTAMOL SULFATE [Concomitant]
  9. HYOSCINE BUTYLBROMIDE/METAMIZOLE SODIUM [Concomitant]
  10. MONOHYDRATE [Concomitant]
  11. VENLAFAXINE HCL [Concomitant]
  12. DOXAZOSIN MESYLATE [Concomitant]

REACTIONS (2)
  - COLITIS ISCHAEMIC [None]
  - SEPSIS [None]
